FAERS Safety Report 8202796-X (Version None)
Quarter: 2012Q1

REPORT INFORMATION
  Report Type: 
  Country: None (occurrence: None)
  Receive Date: 20120312
  Receipt Date: 20120312
  Transmission Date: 20120608
  Serious: No
  Sender: FDA-Public Use
  Company Number: None

PATIENT

DRUGS (4)
  1. HUMULIN R [Suspect]
  2. HUMULIN N [Concomitant]
  3. HUMULIN 70/30 [Concomitant]
  4. HUMALOG [Suspect]

REACTIONS (1)
  - PRODUCT LABEL ISSUE [None]
